FAERS Safety Report 9296196 (Version 4)
Quarter: 2013Q3

REPORT INFORMATION
  Report Type: Spontaneous
  Country: US (occurrence: US)
  Receive Date: 20130517
  Receipt Date: 20130918
  Transmission Date: 20140515
  Serious: Yes (Other)
  Sender: FDA-Public Use
  Company Number: US-BRISTOL-MYERS SQUIBB COMPANY-18587949

PATIENT
  Age: 66 Year
  Sex: Female
  Weight: 103.4 kg

DRUGS (6)
  1. BYETTA PEN DISPOSABLE [Suspect]
     Indication: TYPE 2 DIABETES MELLITUS
     Dosage: THERAPYDURATION:6OR7MNTHS?INCRSDTO10MCG:19JUN13,THERPYON27JUN13?LOT#C048619A,A962477A,OCT14,MAR14
     Route: 058
  2. METFORMIN HCL [Suspect]
     Dates: start: 20130627
  3. EXENATIDE 5MCG PEN, DISPOSABLE DEVICE [Concomitant]
  4. GLUCOPHAGE [Concomitant]
     Indication: TYPE 2 DIABETES MELLITUS
     Route: 048
  5. ASPIRIN [Concomitant]
     Route: 048
  6. BABY ASPIRIN [Concomitant]
     Route: 048

REACTIONS (21)
  - Hepatic steatosis [Not Recovered/Not Resolved]
  - Hepatomegaly [Not Recovered/Not Resolved]
  - Blood disorder [Not Recovered/Not Resolved]
  - Thrombosis [Recovering/Resolving]
  - Erythema [Not Recovered/Not Resolved]
  - Hangnail [Not Recovered/Not Resolved]
  - Inflammation [Not Recovered/Not Resolved]
  - Arthralgia [Not Recovered/Not Resolved]
  - Skin wrinkling [Not Recovered/Not Resolved]
  - Weight decreased [Recovered/Resolved]
  - Injection site erythema [Not Recovered/Not Resolved]
  - Injection site bruising [Unknown]
  - Asthenia [Not Recovered/Not Resolved]
  - Energy increased [Not Recovered/Not Resolved]
  - Drug ineffective [Unknown]
  - Blood glucose decreased [Unknown]
  - Injection site extravasation [Unknown]
  - Sluggishness [Unknown]
  - Dizziness [Unknown]
  - Underdose [Unknown]
  - Product quality issue [Unknown]
